FAERS Safety Report 6555947-7 (Version None)
Quarter: 2010Q1

REPORT INFORMATION
  Report Type: 
  Country: None (occurrence: None)
  Receive Date: 20100125
  Receipt Date: 20100121
  Transmission Date: 20100710
  Serious: Yes (Death, Hospitalization, Other)
  Sender: FDA-Public Use
  Company Number: 2009SP036562

PATIENT
  Age: 65 Year
  Sex: Female

DRUGS (3)
  1. TEMODAL [Suspect]
     Indication: GLIOBLASTOMA MULTIFORME
     Dosage: 74 MG/M2;QD
     Dates: start: 20091001, end: 20091101
  2. BACTRIM [Concomitant]
  3. KEPPRA [Concomitant]

REACTIONS (1)
  - PANCYTOPENIA [None]
